FAERS Safety Report 24282322 (Version 1)
Quarter: 2024Q3

REPORT INFORMATION
  Report Type: Spontaneous
  Country: CN (occurrence: CN)
  Receive Date: 20240904
  Receipt Date: 20240904
  Transmission Date: 20241016
  Serious: Yes (Other)
  Sender: PFIZER
  Company Number: CN-PFIZER INC-PV202400115565

PATIENT
  Age: 20 Year
  Sex: Male
  Weight: 55 kg

DRUGS (2)
  1. METHOTREXATE SODIUM [Suspect]
     Active Substance: METHOTREXATE SODIUM
     Indication: Acute leukaemia
     Dosage: 1000 MG, 1X/DAY
     Route: 041
     Dates: start: 20240822, end: 20240822
  2. CYTARABINE [Suspect]
     Active Substance: CYTARABINE
     Indication: Acute leukaemia
     Dosage: 2 G, 2X/DAY
     Route: 041
     Dates: start: 20240823, end: 20240824

REACTIONS (7)
  - Platelet count decreased [Unknown]
  - Oropharyngeal pain [Unknown]
  - Pharyngeal erythema [Unknown]
  - Mucosal ulceration [Unknown]
  - Nausea [Unknown]
  - Discomfort [Unknown]
  - Mucosal inflammation [Unknown]

NARRATIVE: CASE EVENT DATE: 20240826
